FAERS Safety Report 8986861 (Version 2)
Quarter: 2013Q1

REPORT INFORMATION
  Report Type: Spontaneous
  Country: US (occurrence: US)
  Receive Date: 20121227
  Receipt Date: 20130204
  Transmission Date: 20140127
  Serious: Yes (Death, Other)
  Sender: FDA-Public Use
  Company Number: US-CELGENEUS-163-21880-12122590

PATIENT
  Age: 66 None
  Sex: Male

DRUGS (1)
  1. REVLIMID [Suspect]
     Indication: PLASMA CELL MYELOMA
     Dosage: 15 MILLIGRAM
     Route: 048
     Dates: start: 20120105

REACTIONS (4)
  - Plasma cell myeloma [Fatal]
  - Gastrointestinal haemorrhage [Fatal]
  - Deep vein thrombosis [Unknown]
  - Pulmonary embolism [Unknown]
